FAERS Safety Report 20961953 (Version 1)
Quarter: 2022Q2

REPORT INFORMATION
  Report Type: Spontaneous
  Country: US (occurrence: None)
  Receive Date: 20220614
  Receipt Date: 20220614
  Transmission Date: 20220720
  Serious: Yes (Death)
  Sender: FDA-Public Use
  Company Number: None

PATIENT
  Age: 74 Year
  Sex: Female

DRUGS (2)
  1. REPATHA [Suspect]
     Active Substance: EVOLOCUMAB
     Indication: Hyperlipidaemia
     Dates: start: 20201120, end: 20220613
  2. REPATHA [Concomitant]
     Active Substance: EVOLOCUMAB
     Dates: start: 20201120, end: 20220613

REACTIONS (1)
  - Cardiac disorder [None]

NARRATIVE: CASE EVENT DATE: 20220613
